FAERS Safety Report 23881980 (Version 1)
Quarter: 2024Q2

REPORT INFORMATION
  Report Type: Spontaneous
  Country: BR (occurrence: BR)
  Receive Date: 20240521
  Receipt Date: 20240521
  Transmission Date: 20240716
  Serious: Yes (Hospitalization, Other)
  Sender: FDA-Public Use
  Company Number: BR-SA-SAC20240520000044

PATIENT
  Age: 3 Year
  Sex: Male

DRUGS (18)
  1. SABRIL [Suspect]
     Active Substance: VIGABATRIN
     Indication: Infantile spasms
     Dosage: 1 DF, TID (1 TABLET IN THE MORNING, 1 TABLET IN THE AFTERNOON AND 1 TABLET AT NIGHT)
     Route: 065
  2. VIGABATRIN [Concomitant]
     Active Substance: VIGABATRIN
     Indication: Product used for unknown indication
     Dosage: 250 MG, TID
     Route: 065
  3. CLONAZEPAM [Concomitant]
     Active Substance: CLONAZEPAM
     Indication: Product used for unknown indication
     Dosage: 3 DROP, QD (1 DROP IN THE MORNING AND 2 DROPS AT NIGHT)
     Route: 065
  4. BACLOFEN [Concomitant]
     Active Substance: BACLOFEN
     Indication: Product used for unknown indication
     Dosage: UNK (ONE HALF TABLET DILUTED IN 5ML OF WATER AT NIGHT)
     Route: 065
  5. ESOMEPRAZOLE [Concomitant]
     Active Substance: ESOMEPRAZOLE
     Indication: Product used for unknown indication
     Dosage: UNK (ONE HALF TABLET PER DAY, WHILE FASTING)
     Route: 065
  6. VITAMIN D NOS [Concomitant]
     Active Substance: CHOLECALCIFEROL\ERGOCALCIFEROL
     Indication: Product used for unknown indication
     Dosage: 3 DROP, QD
     Route: 065
  7. VITAMIN D NOS [Concomitant]
     Active Substance: CHOLECALCIFEROL\ERGOCALCIFEROL
     Dosage: 400 IU, QD
  8. NEUTROFER [FERROGLYCINATE CHELATE] [Concomitant]
     Indication: Product used for unknown indication
     Dosage: 12 DROP, QD
     Route: 065
  9. CLENIL [NITROPRUSSIDE SODIUM] [Concomitant]
     Indication: Product used for unknown indication
     Dosage: UNK UNK, BID (4 SPRAYS EVERY 12 HOURS)
     Route: 065
  10. CLENIL [NITROPRUSSIDE SODIUM] [Concomitant]
     Dosage: UNK, QD (1 SPRAY EVERY 12 HOURS, EVERY DAY)
  11. LEVETIRACETAM [Concomitant]
     Active Substance: LEVETIRACETAM
     Indication: Product used for unknown indication
     Dosage: 23 MG/KG
     Route: 065
  12. TOPIRAMATE [Concomitant]
     Active Substance: TOPIRAMATE
     Indication: Product used for unknown indication
     Dosage: 37.5 MG, BID
     Route: 065
  13. METHADONE [Concomitant]
     Active Substance: METHADONE HYDROCHLORIDE
     Indication: Product used for unknown indication
     Dosage: 0.1 MG/KG, QID
     Route: 065
  14. ATROPINE [Concomitant]
     Active Substance: ATROPINE\ATROPINE SULFATE
     Indication: Product used for unknown indication
     Dosage: 1 DROP, QID
     Route: 065
  15. SIMETHICONE (DIMETHICONE) [Concomitant]
     Active Substance: DIMETHICONE
     Indication: Product used for unknown indication
     Dosage: 16 DROP, QID
     Route: 065
  16. OMEPRAZOLE [Concomitant]
     Active Substance: DONEPEZIL HYDROCHLORIDE\OMEPRAZOLE\OMEPRAZOLE MAGNESIUM
     Indication: Product used for unknown indication
     Dosage: 1 MG/KG, QD
     Route: 065
  17. CIPROFLOXACIN [Concomitant]
     Active Substance: CIPROFLOXACIN
     Indication: Product used for unknown indication
     Dosage: 100 MG/KG, BID
     Route: 065
  18. IRON [Concomitant]
     Active Substance: IRON
     Indication: Product used for unknown indication
     Dosage: 4 MG/KG, QD
     Route: 065

REACTIONS (8)
  - Seizure [Unknown]
  - Epilepsy [Unknown]
  - Urinary tract infection [Unknown]
  - Tracheitis [Unknown]
  - Otitis media [Unknown]
  - Drug dependence [Unknown]
  - General physical health deterioration [Unknown]
  - Poor quality product administered [Unknown]
